FAERS Safety Report 20882236 (Version 1)
Quarter: 2022Q2

REPORT INFORMATION
  Report Type: Spontaneous
  Country: FR (occurrence: None)
  Receive Date: 20220527
  Receipt Date: 20220527
  Transmission Date: 20220720
  Serious: Yes (Life-Threatening)
  Sender: FDA-Public Use
  Company Number: FR-ROCHE-3104747

PATIENT
  Age: 76 Year
  Sex: Female
  Weight: 99 kg

DRUGS (4)
  1. RIVOTRIL [Suspect]
     Active Substance: CLONAZEPAM
     Indication: Paralysis
     Route: 048
     Dates: start: 20220328, end: 20220328
  2. BACLOFEN [Suspect]
     Active Substance: BACLOFEN
     Indication: Paralysis
     Route: 048
     Dates: start: 20220328, end: 20220328
  3. IXPRIM [Suspect]
     Active Substance: ACETAMINOPHEN\TRAMADOL HYDROCHLORIDE
     Indication: Pain
     Route: 048
     Dates: start: 20220328, end: 20220328
  4. KARDEGIC [Concomitant]
     Active Substance: ASPIRIN DL-LYSINE
     Dosage: POWDER FOR ORAL SOLUTION

REACTIONS (5)
  - Suicide attempt [Recovered/Resolved]
  - Coma [Recovered/Resolved]
  - Hepatic cytolysis [Recovering/Resolving]
  - Product use in unapproved indication [Unknown]
  - Confusional state [Recovering/Resolving]

NARRATIVE: CASE EVENT DATE: 20220328
